FAERS Safety Report 13603249 (Version 1)
Quarter: 2017Q2

REPORT INFORMATION
  Report Type: Spontaneous
  Country: JP (occurrence: JP)
  Receive Date: 20170601
  Receipt Date: 20170601
  Transmission Date: 20170830
  Serious: Yes (Other)
  Sender: FDA-Public Use
  Company Number: JP-GILEAD-2017-0269014AA

PATIENT
  Sex: Female

DRUGS (7)
  1. MELOXICAM. [Concomitant]
     Active Substance: MELOXICAM
  2. URSO [Concomitant]
     Active Substance: URSODIOL
  3. CALORYL [Concomitant]
  4. LIVACT                             /00847901/ [Concomitant]
     Active Substance: ISOLEUCINE\LEUCINE\VALINE
  5. CALSLOT                            /01051302/ [Concomitant]
  6. PARIET [Concomitant]
     Active Substance: RABEPRAZOLE SODIUM
  7. HARVONI [Suspect]
     Active Substance: LEDIPASVIR\SOFOSBUVIR
     Indication: CHRONIC HEPATITIS C
     Dosage: UNK
     Route: 065
     Dates: start: 20160106, end: 20160329

REACTIONS (1)
  - Ascites [Recovered/Resolved]

NARRATIVE: CASE EVENT DATE: 20160301
